FAERS Safety Report 4395734-1 (Version None)
Quarter: 2004Q3

REPORT INFORMATION
  Report Type: 
  Country: None (occurrence: None)
  Receive Date: 20040707
  Receipt Date: 20040625
  Transmission Date: 20050211
  Serious: No
  Sender: FDA-Public Use
  Company Number: 2004CG01238

PATIENT
  Age: 65 Year
  Sex: Male

DRUGS (3)
  1. CASODEX [Suspect]
     Indication: PROSTATE CANCER
     Dosage: 50 MG QD PO
     Route: 048
     Dates: start: 20040602
  2. ANDROCUR [Concomitant]
  3. KENZEN [Concomitant]

REACTIONS (1)
  - PHLEBITIS [None]
